FAERS Safety Report 17463381 (Version 2)
Quarter: 2020Q2

REPORT INFORMATION
  Report Type: Spontaneous
  Country: US (occurrence: US)
  Receive Date: 20200226
  Receipt Date: 20200413
  Transmission Date: 20200713
  Serious: No
  Sender: FDA-Public Use
  Company Number: US-ASTRAZENECA-2020SE16151

PATIENT
  Sex: Male
  Weight: 79.4 kg

DRUGS (1)
  1. SYMBICORT [Suspect]
     Active Substance: BUDESONIDE\FORMOTEROL FUMARATE DIHYDRATE
     Indication: MUSCLE SPASMS
     Dosage: 160/4.5 MCG, 1 OR 2 TIMES A DAY, ONCE IN MORNING AND OCCASIONALLY 2 PUFFS AS DIRECTED
     Route: 055

REACTIONS (6)
  - Wrong technique in device usage process [Unknown]
  - Off label use [Unknown]
  - Intentional device misuse [Unknown]
  - Device issue [Unknown]
  - Product use issue [Unknown]
  - Malaise [Unknown]
